FAERS Safety Report 10205933 (Version 1)
Quarter: 2014Q2

REPORT INFORMATION
  Report Type: Spontaneous
  Country: US (occurrence: None)
  Receive Date: 20140527
  Receipt Date: 20140527
  Transmission Date: 20141212
  Serious: Yes (Life-Threatening, Hospitalization)
  Sender: FDA-Public Use
  Company Number: None

PATIENT
  Age: 61 Year
  Sex: Female
  Weight: 61.24 kg

DRUGS (1)
  1. ONFI [Suspect]
     Indication: CONVULSION
     Route: 048
     Dates: start: 20131130, end: 20140517

REACTIONS (9)
  - Dysuria [None]
  - Balance disorder [None]
  - Confusional state [None]
  - Blood pressure decreased [None]
  - Blood gases abnormal [None]
  - Drug prescribing error [None]
  - Drug dose omission [None]
  - Poisoning [None]
  - Overdose [None]
